FAERS Safety Report 6460282-1 (Version None)
Quarter: 2009Q4

REPORT INFORMATION
  Report Type: 
  Country: None (occurrence: None)
  Receive Date: 20091130
  Receipt Date: 20091117
  Transmission Date: 20100525
  Serious: Yes (Hospitalization)
  Sender: FDA-Public Use
  Company Number: TN-JNJFOC-20091105267

PATIENT
  Age: 30 Year
  Sex: Male

DRUGS (1)
  1. INFLIXIMAB [Suspect]
     Indication: ANKYLOSING SPONDYLITIS
     Route: 042

REACTIONS (3)
  - OESOPHAGEAL CANDIDIASIS [None]
  - PANCYTOPENIA [None]
  - TOXIC SKIN ERUPTION [None]
